FAERS Safety Report 6242381-2 (Version None)
Quarter: 2009Q2

REPORT INFORMATION
  Report Type: 
  Country: None (occurrence: None)
  Receive Date: 20090622
  Receipt Date: 20090622
  Transmission Date: 20091009
  Serious: Yes (Hospitalization)
  Sender: FDA-Public Use
  Company Number: None

PATIENT
  Sex: Male
  Weight: 70.3075 kg

DRUGS (3)
  1. GEMCITABINE [Suspect]
     Indication: PANCREATIC CARCINOMA
     Dosage: 750MG/M2 (ORIG 100MG/M2)
     Dates: start: 20081205, end: 20090504
  2. ERLOTINIB [Suspect]
     Dosage: 50MG (ORIG 100/MG)
     Dates: start: 20081205, end: 20090504
  3. RADIATION [Concomitant]

REACTIONS (2)
  - HAEMOGLOBIN DECREASED [None]
  - PNEUMONIA [None]
